FAERS Safety Report 11861955 (Version 1)
Quarter: 2015Q4

REPORT INFORMATION
  Report Type: Spontaneous
  Country: US (occurrence: US)
  Receive Date: 20151222
  Receipt Date: 20151222
  Transmission Date: 20160305
  Serious: No
  Sender: FDA-Public Use
  Company Number: US-ROCHE-641402

PATIENT
  Age: 47 Year
  Sex: Female

DRUGS (2)
  1. RIBAVIRIN. [Suspect]
     Active Substance: RIBAVIRIN
     Indication: HEPATITIS C
     Dosage: TAKEN IN DIVIDED DOSES
     Route: 065
  2. PEGASYS [Suspect]
     Active Substance: PEGINTERFERON ALFA-2A
     Indication: HEPATITIS C
     Dosage: FORM: PREFILLED SYRINGE
     Route: 065

REACTIONS (8)
  - Ocular hyperaemia [Not Recovered/Not Resolved]
  - Eye pain [Recovered/Resolved]
  - Oral mucosal blistering [Unknown]
  - Blister [Unknown]
  - Swelling face [Not Recovered/Not Resolved]
  - Neck pain [Not Recovered/Not Resolved]
  - Ear pain [Unknown]
  - Eye irritation [Recovered/Resolved]

NARRATIVE: CASE EVENT DATE: 20090624
